FAERS Safety Report 23175328 (Version 1)
Quarter: 2023Q4

REPORT INFORMATION
  Report Type: Spontaneous
  Country: ES (occurrence: ES)
  Receive Date: 20231113
  Receipt Date: 20231113
  Transmission Date: 20240110
  Serious: Yes (Hospitalization, Other)
  Sender: FDA-Public Use
  Company Number: ES-AEMPS-399947

PATIENT
  Age: 92 Year
  Sex: Female

DRUGS (5)
  1. ENALAPRIL [Interacting]
     Active Substance: ENALAPRIL
     Indication: Product used for unknown indication
     Dosage: 10 MG, QD, 10 MG DIA
     Route: 048
     Dates: start: 20170817, end: 20171026
  2. PROPRANOLOL HYDROCHLORIDE [Interacting]
     Active Substance: PROPRANOLOL HYDROCHLORIDE
     Indication: Product used for unknown indication
     Dosage: 10 MG, QD, 10 MG DIA
     Route: 048
     Dates: start: 20170817, end: 20171026
  3. OMEPRAZOLE [Concomitant]
     Active Substance: OMEPRAZOLE
     Indication: Product used for unknown indication
     Dosage: 20 MG, UNK,  20 MG DIA
     Route: 048
     Dates: start: 20170817
  4. ATORVASTATIN [Concomitant]
     Active Substance: ATORVASTATIN
     Indication: Product used for unknown indication
     Dosage: 40 MG, UNK
     Route: 048
     Dates: start: 20170817
  5. FOLIC ACID [Concomitant]
     Active Substance: FOLIC ACID
     Indication: Product used for unknown indication
     Dosage: 1-0-0
     Route: 048
     Dates: start: 20170817

REACTIONS (2)
  - Acute kidney injury [Recovered/Resolved]
  - Drug interaction [Unknown]

NARRATIVE: CASE EVENT DATE: 20171026
